FAERS Safety Report 19163716 (Version 1)
Quarter: 2021Q2

REPORT INFORMATION
  Report Type: Spontaneous
  Country: US (occurrence: US)
  Receive Date: 20210421
  Receipt Date: 20210421
  Transmission Date: 20210717
  Serious: No
  Sender: FDA-Public Use
  Company Number: US-EMD SERONO-9229777

PATIENT
  Sex: Female

DRUGS (1)
  1. CLADRIBINE. [Suspect]
     Active Substance: CLADRIBINE
     Indication: MULTIPLE SCLEROSIS
     Dosage: FIRST COURSE TREATMENT
     Dates: start: 20210319

REACTIONS (2)
  - White blood cell count decreased [Unknown]
  - Alopecia [Unknown]

NARRATIVE: CASE EVENT DATE: 202103
